FAERS Safety Report 10952869 (Version 2)
Quarter: 2015Q2

REPORT INFORMATION
  Report Type: Spontaneous
  Country: JP (occurrence: JP)
  Receive Date: 20150325
  Receipt Date: 20150413
  Transmission Date: 20150821
  Serious: Yes (Life-Threatening, Other)
  Sender: FDA-Public Use
  Company Number: JP-SA-2015SA027717

PATIENT
  Age: 64 Year
  Sex: Male
  Weight: 52 kg

DRUGS (12)
  1. MOSAPRIDE [Concomitant]
     Active Substance: MOSAPRIDE
     Indication: HAEMODIALYSIS
     Dosage: STRENGTH: 5 MG, DOSE: 1 TABLET
  2. LIMAPROST ALFADEX [Concomitant]
     Active Substance: LIMAPROST
     Indication: HAEMODIALYSIS
     Dosage: STRENGTH: 5 MCG, DOSE: 1 TABLET
  3. PLAVIX [Suspect]
     Active Substance: CLOPIDOGREL BISULFATE
     Indication: ACUTE MYOCARDIAL INFARCTION
     Route: 048
     Dates: start: 20130817, end: 20131104
  4. ESOMEPRAZOLE [Concomitant]
     Active Substance: ESOMEPRAZOLE
     Indication: HAEMODIALYSIS
     Dosage: STRENGTH: 20 MG, DOSE: 1 TABLET
  5. URSODEOXYCHOLIC ACID [Concomitant]
     Active Substance: URSODIOL
     Indication: HAEMODIALYSIS
     Dosage: STRENGTH: 100 MG, DOSE: 1 TABLET
  6. VILDAGLIPTIN [Concomitant]
     Active Substance: VILDAGLIPTIN
     Indication: HAEMODIALYSIS
     Dosage: STRENGTH: 50 MG, DOSE: 1 TABLET
  7. LANTHANUM CARBONATE. [Concomitant]
     Active Substance: LANTHANUM CARBONATE
     Indication: HAEMODIALYSIS
     Dosage: STRENGTH: 250 MG, DOSE: 3 TABLETS
  8. REBAMIPIDE [Concomitant]
     Active Substance: REBAMIPIDE
     Indication: HAEMODIALYSIS
     Dosage: STRENGHT: 100 MG, DOSE: 1 TABLET
  9. CALCIUM CARBONATE. [Concomitant]
     Active Substance: CALCIUM CARBONATE
     Indication: HAEMODIALYSIS
     Dosage: PRECIPITATED, STRENGTH: 500, DOSE: 3 TABLET
  10. CALCITRIOL. [Concomitant]
     Active Substance: CALCITRIOL
     Indication: HAEMODIALYSIS
     Dosage: STRENGTH: 0.25 NG, DOSE: 1 CAPSULE
  11. ATORVASTATIN [Concomitant]
     Active Substance: ATORVASTATIN
     Indication: HAEMODIALYSIS
     Dosage: STRENGTH: 5 MG, DOSE: 1 TABLET
  12. ASPIRIN. [Suspect]
     Active Substance: ASPIRIN
     Indication: ACUTE MYOCARDIAL INFARCTION
     Dosage: STRENGH: 100 MG, DOSE: 1 TABLET
     Route: 048
     Dates: start: 20130817

REACTIONS (5)
  - Pyrexia [Recovering/Resolving]
  - Postoperative wound infection [Unknown]
  - Thrombocytopenia [Recovered/Resolved]
  - Febrile neutropenia [Recovering/Resolving]
  - Neutropenia [Recovering/Resolving]

NARRATIVE: CASE EVENT DATE: 20130903
